FAERS Safety Report 10916263 (Version 1)
Quarter: 2015Q1

REPORT INFORMATION
  Report Type: Spontaneous
  Country: DK (occurrence: GB)
  Receive Date: 20150316
  Receipt Date: 20150316
  Transmission Date: 20150721
  Serious: Yes (Other)
  Sender: FDA-Public Use
  Company Number: GB-FRI-1000075247

PATIENT
  Sex: Female

DRUGS (13)
  1. CITALOPRAM [Suspect]
     Active Substance: CITALOPRAM HYDROBROMIDE
     Dosage: 30 MG
     Route: 048
  2. KEPPRA [Suspect]
     Active Substance: LEVETIRACETAM
     Indication: EPILEPSY
     Dosage: 250 MG
     Route: 065
  3. FERROUS FUMARATE [Concomitant]
     Active Substance: FERROUS FUMARATE
     Indication: PRODUCT USED FOR UNKNOWN INDICATION
     Route: 065
  4. CITALOPRAM [Suspect]
     Active Substance: CITALOPRAM HYDROBROMIDE
     Indication: ANXIETY
     Dosage: 10 MG
     Route: 048
     Dates: start: 201303, end: 201309
  5. LAMICTAL [Suspect]
     Active Substance: LAMOTRIGINE
     Dosage: 500 MG
     Route: 048
  6. TEGRETOL [Suspect]
     Active Substance: CARBAMAZEPINE
     Indication: EPILEPSY
     Dosage: 1200 MG (400 MG MORNINGS PLUS 800 MG AT NIGHT)
     Route: 048
  7. CYCLOGEST [Concomitant]
     Active Substance: PROGESTERONE
     Indication: PRODUCT USED FOR UNKNOWN INDICATION
     Route: 065
  8. LYRICA [Suspect]
     Active Substance: PREGABALIN
     Dosage: 300 MG
     Route: 065
  9. LAMICTAL [Suspect]
     Active Substance: LAMOTRIGINE
     Indication: EPILEPSY
     Dosage: 550 MG
     Route: 048
  10. MOMETASONE [Concomitant]
     Active Substance: MOMETASONE
     Indication: PRODUCT USED FOR UNKNOWN INDICATION
     Route: 045
  11. CITALOPRAM [Suspect]
     Active Substance: CITALOPRAM HYDROBROMIDE
     Dosage: 20 MG
     Route: 048
     Dates: start: 201309
  12. LYRICA [Suspect]
     Active Substance: PREGABALIN
     Indication: PERIODIC LIMB MOVEMENT DISORDER
     Dosage: 150 MG
     Route: 065
  13. CITALOPRAM [Suspect]
     Active Substance: CITALOPRAM HYDROBROMIDE
     Indication: DEPRESSION
     Dosage: 40 MG
     Route: 048
     Dates: start: 2008, end: 201208

REACTIONS (13)
  - Anxiety [Unknown]
  - Insomnia [Unknown]
  - Middle insomnia [Unknown]
  - Seizure [Unknown]
  - Depression [Unknown]
  - Cognitive disorder [Unknown]
  - Hippocampal sclerosis [Unknown]
  - Sleep disorder [Unknown]
  - Osteopenia [Unknown]
  - Initial insomnia [Unknown]
  - Aura [Unknown]
  - Periodic limb movement disorder [Unknown]
  - Temporal lobe epilepsy [Unknown]
